FAERS Safety Report 5164165-9 (Version None)
Quarter: 2006Q4

REPORT INFORMATION
  Report Type: 
  Country: None (occurrence: None)
  Receive Date: 20060918
  Receipt Date: 20051228
  Transmission Date: 20070319
  Serious: Yes (Other)
  Sender: FDA-Public Use
  Company Number: US-JNJFOC-20051200290

PATIENT
  Age: 50 Year
  Sex: Female
  Weight: 86.1834 kg

DRUGS (1)
  1. TOPAMAX [Suspect]
     Indication: MIGRAINE PROPHYLAXIS
     Dosage: 25 MG, 3 IN 1 DAY
     Dates: start: 20050525, end: 20051009

REACTIONS (1)
  - GLAUCOMA [None]
